FAERS Safety Report 5608624-0 (Version None)
Quarter: 2008Q1

REPORT INFORMATION
  Report Type: 
  Country: None (occurrence: None)
  Receive Date: 20080130
  Receipt Date: 20080118
  Transmission Date: 20080703
  Serious: Yes (Other)
  Sender: FDA-Public Use
  Company Number: US-PFIZER INC-2008006634

PATIENT
  Sex: Female
  Weight: 48.5 kg

DRUGS (6)
  1. CHANTIX [Suspect]
     Indication: SMOKING CESSATION THERAPY
     Dates: start: 20071201, end: 20071201
  2. GABAPENTIN [Concomitant]
  3. FENTANYL [Concomitant]
  4. KLONOPIN [Concomitant]
  5. LEVOTHYROXINE SODIUM [Concomitant]
     Indication: HYPOTHYROIDISM
  6. BACTRIM [Concomitant]

REACTIONS (6)
  - ABDOMINAL PAIN UPPER [None]
  - BLOOD URINE PRESENT [None]
  - GALLBLADDER DISORDER [None]
  - KIDNEY INFECTION [None]
  - MALAISE [None]
  - RENAL DISORDER [None]
